FAERS Safety Report 9362203 (Version 1)
Quarter: 2013Q2

REPORT INFORMATION
  Report Type: Spontaneous
  Country: US (occurrence: US)
  Receive Date: 20130622
  Receipt Date: 20130622
  Transmission Date: 20140414
  Serious: No
  Sender: FDA-Public Use
  Company Number: US-B.I. PHARMACEUTICALS,INC./RIDGEFIELD-2013-BI-17074BP

PATIENT
  Sex: Female
  Weight: 70 kg

DRUGS (10)
  1. PRADAXA [Suspect]
     Indication: ATRIAL FIBRILLATION
     Dosage: 300 MG
     Route: 048
     Dates: start: 2013
  2. EFFEXOR [Concomitant]
     Indication: DEPRESSION
     Dosage: 150 MG
     Route: 048
  3. PRAVACHOL [Concomitant]
     Indication: BLOOD CHOLESTEROL INCREASED
     Dosage: 40 MG
     Route: 048
  4. ZIAC [Concomitant]
     Indication: HYPERTENSION
     Dosage: STRENGTH: 5/6.25 MG; DAILY DOSE: 10/12.5 MG
     Route: 048
  5. XANAX [Concomitant]
     Indication: ANXIETY
     Route: 048
  6. METFORMIN [Concomitant]
     Indication: DIABETES MELLITUS
     Dosage: 1000 MG
     Route: 048
  7. CARDIZEM CD [Concomitant]
     Indication: HYPERTENSION
     Dosage: 240 MG
     Route: 048
  8. GLIPERIDE [Concomitant]
     Indication: DIABETES MELLITUS
     Dosage: 10 MG
     Route: 048
  9. LEVOTHYROXINE [Concomitant]
     Indication: THYROID DISORDER
     Dosage: 0.125 MCG
     Route: 048
  10. AMBIEN [Concomitant]
     Route: 048

REACTIONS (3)
  - Contusion [Not Recovered/Not Resolved]
  - Pain in extremity [Not Recovered/Not Resolved]
  - Sciatica [Not Recovered/Not Resolved]
